FAERS Safety Report 14750408 (Version 2)
Quarter: 2018Q2

REPORT INFORMATION
  Report Type: Spontaneous
  Country: US (occurrence: US)
  Receive Date: 20180412
  Receipt Date: 20180429
  Transmission Date: 20180711
  Serious: No
  Sender: FDA-Public Use
  Company Number: US-JNJFOC-20180322025

PATIENT
  Age: 4 Year
  Sex: Female
  Weight: 16.78 kg

DRUGS (12)
  1. CHILDRENS ZYRTEC ALLERGY [Suspect]
     Active Substance: CETIRIZINE HYDROCHLORIDE
     Indication: MULTIPLE ALLERGIES
     Dosage: DOSED USING A SYRINGE
     Route: 065
     Dates: start: 20180306, end: 20180315
  2. CHILDRENS ZYRTEC ALLERGY [Suspect]
     Active Substance: CETIRIZINE HYDROCHLORIDE
     Indication: PROPHYLAXIS
     Dosage: FOR ALLERGIES
     Route: 065
  3. CHILDRENS ZYRTEC ALLERGY [Suspect]
     Active Substance: CETIRIZINE HYDROCHLORIDE
     Indication: URTICARIA
     Dosage: DOSED USING A SYRINGE
     Route: 065
     Dates: start: 20180306, end: 20180315
  4. CHILDRENS ZYRTEC ALLERGY [Suspect]
     Active Substance: CETIRIZINE HYDROCHLORIDE
     Indication: PROPHYLAXIS
     Dosage: DOSED USING A SYRINGE
     Route: 065
     Dates: start: 20180306, end: 20180315
  5. CHILDRENS ZYRTEC ALLERGY [Suspect]
     Active Substance: CETIRIZINE HYDROCHLORIDE
     Indication: PROPHYLAXIS
     Dosage: 1.5 FROM THE FIRST, WATERY TASTING BOTTLE, AND 1.5 FROM ANOTHER BOTTLE
     Route: 065
     Dates: start: 20180315, end: 20180315
  6. CHILDRENS ZYRTEC ALLERGY [Suspect]
     Active Substance: CETIRIZINE HYDROCHLORIDE
     Indication: MULTIPLE ALLERGIES
     Dosage: 1.5 FROM THE FIRST, WATERY TASTING BOTTLE, AND 1.5 FROM ANOTHER BOTTLE
     Route: 065
     Dates: start: 20180315, end: 20180315
  7. CHILDRENS ZYRTEC ALLERGY [Suspect]
     Active Substance: CETIRIZINE HYDROCHLORIDE
     Indication: URTICARIA
     Dosage: 1.5 FROM THE FIRST, WATERY TASTING BOTTLE, AND 1.5 FROM ANOTHER BOTTLE
     Route: 065
     Dates: start: 20180315, end: 20180315
  8. CHILDRENS ZYRTEC ALLERGY [Suspect]
     Active Substance: CETIRIZINE HYDROCHLORIDE
     Indication: ALLERGY TO ANIMAL
     Dosage: FOR ALLERGIES
     Route: 065
  9. CHILDRENS ZYRTEC ALLERGY [Suspect]
     Active Substance: CETIRIZINE HYDROCHLORIDE
     Indication: MULTIPLE ALLERGIES
     Dosage: FOR ALLERGIES
     Route: 065
  10. CHILDRENS ZYRTEC ALLERGY [Suspect]
     Active Substance: CETIRIZINE HYDROCHLORIDE
     Indication: ALLERGY TO ANIMAL
     Dosage: DOSED USING A SYRINGE
     Route: 065
     Dates: start: 20180306, end: 20180315
  11. CHILDRENS ZYRTEC ALLERGY [Suspect]
     Active Substance: CETIRIZINE HYDROCHLORIDE
     Indication: URTICARIA
     Dosage: FOR ALLERGIES
     Route: 065
  12. CHILDRENS ZYRTEC ALLERGY [Suspect]
     Active Substance: CETIRIZINE HYDROCHLORIDE
     Indication: ALLERGY TO ANIMAL
     Dosage: 1.5 FROM THE FIRST, WATERY TASTING BOTTLE, AND 1.5 FROM ANOTHER BOTTLE
     Route: 065
     Dates: start: 20180315, end: 20180315

REACTIONS (7)
  - Product taste abnormal [None]
  - Product use in unapproved indication [Unknown]
  - Wrong technique in product usage process [Unknown]
  - Product packaging quantity issue [Unknown]
  - Product packaging issue [Unknown]
  - Overdose [Unknown]
  - Product physical issue [Unknown]

NARRATIVE: CASE EVENT DATE: 20180306
